FAERS Safety Report 7544830-6 (Version None)
Quarter: 2011Q2

REPORT INFORMATION
  Report Type: 
  Country: None (occurrence: None)
  Receive Date: 20110614
  Receipt Date: 20091120
  Transmission Date: 20111010
  Serious: Yes (Other)
  Sender: FDA-Public Use
  Company Number: US-BAYER-200940923NA

PATIENT
  Age: 73 Year
  Sex: Male
  Weight: 63 kg

DRUGS (9)
  1. ACETYLSALICYLIC ACID SRT [Concomitant]
     Dosage: 81 MG, QD
     Route: 048
  2. CEFAZOLIN [Concomitant]
     Dosage: 2000 MG, UNK
     Route: 042
     Dates: start: 20040514
  3. HYDROCHLOROTHIAZIDE [Concomitant]
     Dosage: 12.5 MG, QD
     Route: 048
  4. ALTACE [Concomitant]
     Dosage: 10 MG, QD
     Route: 048
  5. DOPAMINE HCL [Concomitant]
     Dosage: 400 MG, UNK
     Route: 042
     Dates: start: 20040514, end: 20040518
  6. HEPARIN [Concomitant]
     Dosage: 30000 U, UNK
     Route: 042
     Dates: start: 20040514
  7. TRASYLOL [Suspect]
     Indication: CORONARY ARTERY BYPASS
     Dosage: 200CC, THEN 50ML/HR
     Route: 042
     Dates: start: 20040514, end: 20040514
  8. LIPITOR [Concomitant]
     Dosage: 10 MG, QD
     Route: 048
  9. MANNITOL [Concomitant]
     Dosage: 50 G, UNK
     Route: 042
     Dates: start: 20040514

REACTIONS (11)
  - RENAL FAILURE [None]
  - DISABILITY [None]
  - ANXIETY [None]
  - DEPRESSION [None]
  - PAIN [None]
  - RENAL INJURY [None]
  - UNEVALUABLE EVENT [None]
  - MULTI-ORGAN FAILURE [None]
  - INJURY [None]
  - FEAR [None]
  - ANHEDONIA [None]
